FAERS Safety Report 17037773 (Version 2)
Quarter: 2019Q4

REPORT INFORMATION
  Report Type: Spontaneous
  Country: AU (occurrence: AU)
  Receive Date: 20191115
  Receipt Date: 20191218
  Transmission Date: 20200122
  Serious: Yes (Hospitalization, Other)
  Sender: FDA-Public Use
  Company Number: AU-SA-2019SA313257

PATIENT
  Age: 74 Year
  Sex: Female
  Weight: 75 kg

DRUGS (19)
  1. AMLODIPINE [Concomitant]
     Active Substance: AMLODIPINE BESYLATE
     Dosage: 10 MG
  2. CALCIUM [Concomitant]
     Active Substance: CALCIUM
     Dosage: UNK
     Route: 065
  3. FOLIC ACID. [Concomitant]
     Active Substance: FOLIC ACID
     Dosage: UNK
     Route: 065
  4. CITRACAL PLUS D [Concomitant]
     Dosage: UNK
     Route: 065
  5. LYRICA [Concomitant]
     Active Substance: PREGABALIN
     Dosage: UNK
     Route: 065
  6. MAGNESIUM [Concomitant]
     Active Substance: MAGNESIUM
     Dosage: UNK
     Route: 065
  7. PREDNISOLONE. [Concomitant]
     Active Substance: PREDNISOLONE
     Dosage: UNK
     Route: 065
  8. VITAMIN D [ERGOCALCIFEROL] [Concomitant]
     Active Substance: ERGOCALCIFEROL
     Dosage: UNK
     Route: 065
  9. AVAPRO HCT [Suspect]
     Active Substance: HYDROCHLOROTHIAZIDE\IRBESARTAN
     Indication: PRODUCT USED FOR UNKNOWN INDICATION
     Dosage: UNK
  10. METHOTREXATE. [Suspect]
     Active Substance: METHOTREXATE
     Indication: RHEUMATOID ARTHRITIS
     Dosage: 20 MG [QWK]
     Route: 065
  11. PANADOL [Concomitant]
     Active Substance: ACETAMINOPHEN
     Dosage: UNK
     Route: 065
  12. PLAQUENIL [Concomitant]
     Active Substance: HYDROXYCHLOROQUINE SULFATE
     Dosage: UNK
     Route: 065
  13. PROLIA [Suspect]
     Active Substance: DENOSUMAB
     Indication: OSTEOPOROTIC FRACTURE
     Dosage: UNK
     Route: 065
     Dates: start: 201906
  14. SULFASALAZINE. [Suspect]
     Active Substance: SULFASALAZINE
     Indication: RHEUMATOID ARTHRITIS
     Dosage: 1000 MG, UNK
     Route: 065
  15. AMLODIPINE [Concomitant]
     Active Substance: AMLODIPINE BESYLATE
     Dosage: UNK
     Route: 065
  16. HYDROXYCHLOROQUINE [Concomitant]
     Active Substance: HYDROXYCHLOROQUINE
     Dosage: UNK
     Route: 065
  17. KARVEZIDE [Concomitant]
     Active Substance: HYDROCHLOROTHIAZIDE\IRBESARTAN
     Dosage: UNK
     Route: 065
  18. HYDRALAZINE HYDROCHLORIDE. [Concomitant]
     Active Substance: HYDRALAZINE HYDROCHLORIDE
     Dosage: UNK
     Route: 065
  19. PREDNISOLONE. [Concomitant]
     Active Substance: PREDNISOLONE
     Dosage: 25 MG, QD

REACTIONS (20)
  - Blood iron decreased [Unknown]
  - Hypertension [Unknown]
  - Blood lactate dehydrogenase decreased [Unknown]
  - Vomiting [Recovered/Resolved]
  - Cushingoid [Recovering/Resolving]
  - Acute kidney injury [Recovering/Resolving]
  - Nausea [Recovered/Resolved]
  - Cough [Unknown]
  - Pollakiuria [Unknown]
  - Hypocalcaemia [Recovering/Resolving]
  - Pancreatitis [Recovering/Resolving]
  - Malaise [Recovering/Resolving]
  - Oedema peripheral [Unknown]
  - Action tremor [Unknown]
  - Asthenia [Unknown]
  - Anaemia [Recovering/Resolving]
  - Decreased appetite [Recovering/Resolving]
  - Chills [Recovering/Resolving]
  - Escherichia urinary tract infection [Recovered/Resolved]
  - Dehydration [Recovering/Resolving]

NARRATIVE: CASE EVENT DATE: 2019
